FAERS Safety Report 6016377-X (Version None)
Quarter: 2008Q4

REPORT INFORMATION
  Report Type: 
  Country: None (occurrence: None)
  Receive Date: 20081218
  Receipt Date: 20081210
  Transmission Date: 20090506
  Serious: Yes (Other)
  Sender: FDA-Public Use
  Company Number: GXBR2008US02309

PATIENT
  Age: 63 Year
  Sex: Female
  Weight: 81.2 kg

DRUGS (3)
  1. METOPROLOL SUCCINATE [Suspect]
     Indication: CARDIAC FAILURE
     Dosage: 25 MG, BID; ORAL
     Route: 048
     Dates: start: 20080922
  2. LASIX [Concomitant]
  3. LOVASTATIN [Concomitant]

REACTIONS (3)
  - CEREBROVASCULAR ACCIDENT [None]
  - MASKED FACIES [None]
  - TRANSIENT ISCHAEMIC ATTACK [None]
